FAERS Safety Report 9315131 (Version 2)
Quarter: 2013Q2

REPORT INFORMATION
  Report Type: Spontaneous
  Country: FI (occurrence: FI)
  Receive Date: 20130529
  Receipt Date: 20130617
  Transmission Date: 20140414
  Serious: Yes (Other)
  Sender: FDA-Public Use
  Company Number: FI-PFIZER INC-2013162600

PATIENT
  Age: 48 Year
  Sex: Female
  Weight: 64 kg

DRUGS (3)
  1. NEURONTIN [Suspect]
     Indication: COUGH
     Dosage: 300 MG, UNK
     Route: 048
     Dates: start: 20130504, end: 20130505
  2. DESLORATADINE ACTAVIS [Concomitant]
     Indication: HYPERSENSITIVITY
     Dosage: 5 MG, UNK
     Route: 048
  3. MONTELUKAST [Concomitant]
     Dosage: 10 MG, UNK
     Route: 048

REACTIONS (9)
  - Off label use [Unknown]
  - Fatigue [Recovered/Resolved]
  - Feeling drunk [Recovered/Resolved]
  - Activities of daily living impaired [Recovered/Resolved]
  - Feeling abnormal [Recovered/Resolved]
  - Dysarthria [Recovered/Resolved]
  - Daydreaming [Recovered/Resolved]
  - Asthenia [Recovered/Resolved]
  - Peripheral coldness [Recovered/Resolved]
